FAERS Safety Report 6345118-1 (Version None)
Quarter: 2009Q3

REPORT INFORMATION
  Report Type: 
  Country: None (occurrence: None)
  Receive Date: 20090909
  Receipt Date: 20070521
  Transmission Date: 20100115
  Serious: Yes (Hospitalization, Other)
  Sender: FDA-Public Use
  Company Number: US-ASTRAZENECA-2006UW26300

PATIENT
  Age: 50 Year
  Sex: Female
  Weight: 80.3 kg

DRUGS (22)
  1. SEROQUEL [Suspect]
     Indication: NERVOUS SYSTEM DISORDER
     Dosage: DOSE AS USED 25 MG, TOTAL DAILY DOSE 100 MG
     Route: 048
     Dates: start: 20030101, end: 20060201
  2. SEROQUEL [Suspect]
     Indication: SLEEP DISORDER
     Dosage: DOSE AS USED 25 MG, TOTAL DAILY DOSE 100 MG
     Route: 048
     Dates: start: 20030101, end: 20060201
  3. SEROQUEL [Suspect]
     Route: 048
     Dates: start: 20030825
  4. SEROQUEL [Suspect]
     Route: 048
     Dates: start: 20030825
  5. OTHER PSYCHIATRIC MEDICATION [Concomitant]
     Dosage: DOSE AS USED 30 MG, TOTAL DAILY DOSE 30 MG
     Dates: start: 19980101
  6. COVERA-HS [Concomitant]
     Dosage: 240 HS
     Dates: start: 19990930
  7. VIOXX [Concomitant]
     Dosage: 25
     Dates: start: 19990930
  8. UNIVASC [Concomitant]
     Dates: start: 20011112
  9. XANAX [Concomitant]
     Dates: start: 20011112
  10. LIPITOR [Concomitant]
     Dosage: 10 MG/ DAY
     Dates: start: 20020308
  11. LORTAB/ LORCET/ HYDRO/ APAP [Concomitant]
     Dates: start: 19990930
  12. BELLADONA [Concomitant]
     Dates: start: 20030825
  13. PROMETHAZINE [Concomitant]
     Dates: start: 20030825
  14. ZOLOFT [Concomitant]
     Dates: start: 20030825
  15. SINGULAIR [Concomitant]
     Dates: start: 20030825
  16. TOPROL-XL [Concomitant]
     Dates: start: 20030825
  17. CLONAZEPAM [Concomitant]
     Dates: start: 20030825
  18. LORAZEPAM [Concomitant]
     Dosage: DISPENSED 1 MG TO 2 MG
     Dates: start: 20030922
  19. AVAPRO [Concomitant]
     Dates: start: 20031114
  20. ATENOLOL [Concomitant]
     Dates: start: 20031114
  21. TRIAZOLAM [Concomitant]
     Dates: start: 20040113
  22. PROVENTIL-HFA [Concomitant]
     Dates: start: 20030825

REACTIONS (6)
  - CHOLECYSTITIS [None]
  - CHOLELITHIASIS [None]
  - DIABETES MELLITUS [None]
  - GALLBLADDER DISORDER [None]
  - GALLBLADDER OPERATION [None]
  - TYPE 2 DIABETES MELLITUS [None]
